FAERS Safety Report 19655881 (Version 5)
Quarter: 2021Q4

REPORT INFORMATION
  Report Type: Report from Study
  Country: DE (occurrence: DE)
  Receive Date: 20210804
  Receipt Date: 20211112
  Transmission Date: 20220303
  Serious: Yes (Other)
  Sender: FDA-Public Use
  Company Number: DE-002147023-NVSC2020DE181293

PATIENT
  Age: 53 Year
  Sex: Female
  Weight: 83 kg

DRUGS (3)
  1. LETROZOLE [Suspect]
     Active Substance: LETROZOLE
     Indication: Breast cancer metastatic
     Dosage: 2.5 MG, QD
     Route: 048
     Dates: start: 20200523
  2. KISQALI [Suspect]
     Active Substance: RIBOCICLIB
     Indication: Breast cancer metastatic
     Dosage: 600 MG, QD (ADMINISTRATION SCHEME 21 DAYS INTAKE, 7 DAYS PAUSE)
     Route: 048
     Dates: start: 20200523
  3. NOVALGIN                           /06276704/ [Concomitant]
     Indication: Product used for unknown indication
     Dosage: 40 DRP, PRN (START 25-MAY-2020)
     Route: 048

REACTIONS (11)
  - Pyrexia [Recovered/Resolved]
  - Back pain [Not Recovered/Not Resolved]
  - Pustule [Unknown]
  - Nausea [Recovering/Resolving]
  - Pruritus [Recovering/Resolving]
  - Vomiting [Recovering/Resolving]
  - Fatigue [Recovering/Resolving]
  - Abdominal pain [Unknown]
  - Headache [Recovering/Resolving]
  - Dizziness [Recovered/Resolved]
  - Myalgia [Not Recovered/Not Resolved]

NARRATIVE: CASE EVENT DATE: 20200524
